FAERS Safety Report 9159994 (Version 2)
Quarter: 2013Q1

REPORT INFORMATION
  Report Type: Spontaneous
  Country: GB (occurrence: None)
  Receive Date: 20130220
  Receipt Date: 20130304
  Transmission Date: 20140127
  Serious: Yes (Other)
  Sender: FDA-Public Use
  Company Number: KAD201302-000220

PATIENT
  Age: 52 Year
  Sex: Female

DRUGS (7)
  1. RIBAVIRIN [Suspect]
     Indication: HEPATITIS C
     Route: 048
     Dates: start: 20121001
  2. MIRTAZAPINE (MIRTAZAPINE) [Suspect]
     Dosage: STOPPED?
  3. PEGINTERFERON ALFA-2B (PEGINTERFERON ALFA-2B) [Suspect]
     Indication: HEPATITIS C
     Route: 058
     Dates: start: 20121001
  4. TELAPREVIR (TELAPREVIR) [Suspect]
     Indication: HEPATITIS C
     Route: 048
     Dates: start: 20121001
  5. EMITRICITABINE (EMTRICITABINE) [Concomitant]
  6. RILPIVIRINE HYDROCHLORIDE (RILPIVIRINE HYDROCHLORIDE) [Concomitant]
  7. TENOFOVIR DISPROXIL FUMARATE (TENOFOVIR DISOPROXIL FUMARATE) [Concomitant]

REACTIONS (13)
  - Confusional state [None]
  - Disorientation [None]
  - Fatigue [None]
  - Haemoglobin decreased [None]
  - Hallucination [None]
  - Insomnia [None]
  - Depressed mood [None]
  - Musculoskeletal pain [None]
  - Off label use [None]
  - Skin disorder [None]
  - Abnormal dreams [None]
  - Vomiting [None]
  - Musculoskeletal pain [None]
